FAERS Safety Report 23424997 (Version 4)
Quarter: 2024Q3

REPORT INFORMATION
  Report Type: Report from Study
  Country: US (occurrence: US)
  Receive Date: 20240121
  Receipt Date: 20240809
  Transmission Date: 20241017
  Serious: Yes (Hospitalization, Other)
  Sender: SANDOZ
  Company Number: US-SANDOZ-SDZ2023US055741

PATIENT
  Sex: Female
  Weight: 74.83 kg

DRUGS (4)
  1. TREPROSTINIL [Suspect]
     Active Substance: TREPROSTINIL
     Dosage: UNK UNK, CONT, 91 NG/KG/ MIN
     Route: 042
     Dates: start: 20230314
  2. TREPROSTINIL [Suspect]
     Active Substance: TREPROSTINIL
     Dosage: 100 NG/KG/MIN, FIRST SHIP DATE 14-MAR-2023
     Route: 042
     Dates: start: 20230314
  3. TREPROSTINIL [Suspect]
     Active Substance: TREPROSTINIL
     Indication: Pulmonary arterial hypertension
     Dosage: 91 NG/KG/ MIN, CONT,2.5MG/ML
     Route: 042
     Dates: start: 20230314
  4. TADALAFIL [Concomitant]
     Active Substance: TADALAFIL
     Indication: Product used for unknown indication
     Dosage: UNK
     Route: 065

REACTIONS (12)
  - Infusion site infection [Unknown]
  - Weight increased [Unknown]
  - Urticaria [Unknown]
  - Soft tissue infection [Unknown]
  - Abdominal discomfort [Unknown]
  - Spider vein [Unknown]
  - Haemoglobin increased [Unknown]
  - Telangiectasia [Unknown]
  - Rash [Unknown]
  - Nausea [Unknown]
  - Headache [Unknown]
  - Vomiting [Unknown]
